FAERS Safety Report 7404327-0 (Version None)
Quarter: 2011Q2

REPORT INFORMATION
  Report Type: 
  Country: None (occurrence: None)
  Receive Date: 20110408
  Receipt Date: 20110331
  Transmission Date: 20111010
  Serious: Yes (Hospitalization)
  Sender: FDA-Public Use
  Company Number: NL-ROCHE-768599

PATIENT
  Sex: Male

DRUGS (6)
  1. CISPLATIN [Suspect]
     Indication: GASTRIC CANCER
     Dosage: CUMULATIVE DOSE: 480 MG IN 4 TIME, LAST DOSE PRIOR TO SAE: 22 MARCH 2011
     Route: 042
     Dates: start: 20101027
  2. EPIRUBICINE [Suspect]
     Indication: GASTRIC CANCER
     Dosage: CUMULATIVE DOSE: 275 MG IN 4 TIME, LAST DOSE PRIOR TO SAE: 22 MARCH 2011.
     Route: 042
     Dates: start: 20101027
  3. ATORVASTATIN CALCIUM [Concomitant]
  4. CAPECITABINE [Suspect]
     Indication: GASTRIC CANCER
     Dosage: CUMULATIVE DOSE: 125000 MG, LAST DOSE PRIOR TO SAE: 22 MARCH 2011.
     Route: 048
     Dates: start: 20101027
  5. METOCLOPRAMIDE [Concomitant]
  6. ASACOL [Concomitant]

REACTIONS (1)
  - ILEUS [None]
